FAERS Safety Report 9265367 (Version 2)
Quarter: 2013Q2

REPORT INFORMATION
  Report Type: Spontaneous
  Country: DE (occurrence: CA)
  Receive Date: 20130501
  Receipt Date: 20130523
  Transmission Date: 20140414
  Serious: Yes (Hospitalization)
  Sender: FDA-Public Use
  Company Number: CA-FRI-1000044830

PATIENT
  Age: 70 Year
  Sex: Female
  Weight: 69 kg

DRUGS (3)
  1. ROFLUMILAST [Suspect]
     Indication: CHRONIC OBSTRUCTIVE PULMONARY DISEASE
     Dosage: 500 MCG
     Route: 048
     Dates: start: 20110614
  2. SYMBICORT [Concomitant]
     Dates: start: 20110614
  3. SPIRIVA [Concomitant]

REACTIONS (4)
  - Knee arthroplasty [Recovered/Resolved]
  - Intervertebral disc degeneration [Recovered/Resolved]
  - Malaise [Not Recovered/Not Resolved]
  - Headache [Not Recovered/Not Resolved]
